FAERS Safety Report 8622237-8 (Version None)
Quarter: 2012Q3

REPORT INFORMATION
  Report Type: 
  Country: None (occurrence: None)
  Receive Date: 20120827
  Receipt Date: 20120813
  Transmission Date: 20120928
  Serious: Yes (Other)
  Sender: FDA-Public Use
  Company Number: US-009507513-2012SP027554

PATIENT

DRUGS (8)
  1. PEG-INTRON [Suspect]
     Indication: HEPATITIS C
     Dosage: UNK UNK, UNKNOWN
     Dates: start: 20120303
  2. REBETOL [Suspect]
     Indication: HEPATITIS C
     Dosage: UNK UNK, QAM
     Route: 065
     Dates: start: 20120303
  3. REBETOL [Suspect]
     Dosage: UNK UNK, QPM
     Route: 065
  4. REBETOL [Suspect]
     Dosage: UNK UNK, QAM
     Route: 065
  5. REBETOL [Suspect]
     Dosage: UNK UNK, QPM
     Route: 065
     Dates: start: 20120303
  6. REBETOL [Suspect]
     Dosage: UNK UNK, QPM
     Route: 065
  7. VICTRELIS [Suspect]
     Indication: HEPATITIS C
     Dosage: UNK UNK, UNKNOWN
     Route: 065
     Dates: start: 20120331
  8. REBETOL [Suspect]
     Dosage: UNK UNK, QAM
     Route: 065

REACTIONS (13)
  - INJURY [None]
  - CONTUSION [None]
  - ANXIETY [None]
  - DYSGEUSIA [None]
  - ANAEMIA [None]
  - WHITE BLOOD CELL COUNT DECREASED [None]
  - FALL [None]
  - URINE URIC ACID INCREASED [None]
  - FEELING ABNORMAL [None]
  - LOSS OF CONSCIOUSNESS [None]
  - HAEMOGLOBIN DECREASED [None]
  - DISTURBANCE IN ATTENTION [None]
  - ASTHENIA [None]
